FAERS Safety Report 4334815-5 (Version None)
Quarter: 2004Q2

REPORT INFORMATION
  Report Type: 
  Country: None (occurrence: None)
  Receive Date: 20040407
  Receipt Date: 20040407
  Transmission Date: 20050107
  Serious: Yes (Disabling, Other)
  Sender: FDA-Public Use
  Company Number: None

PATIENT
  Age: 44 Year
  Sex: Male
  Weight: 68.0396 kg

DRUGS (1)
  1. SEPTOCAINE [Suspect]
     Dosage: 1-2 VIALS INJECTION
     Dates: start: 20031115

REACTIONS (13)
  - ANXIETY [None]
  - BALANCE DISORDER [None]
  - CONFUSIONAL STATE [None]
  - CORNEAL REFLEX DECREASED [None]
  - DEPRESSION [None]
  - FACIAL PALSY [None]
  - IATROGENIC INJURY [None]
  - INJECTION SITE NECROSIS [None]
  - PAIN IN JAW [None]
  - PARAESTHESIA [None]
  - SPEECH DISORDER [None]
  - SWELLING FACE [None]
  - VISUAL DISTURBANCE [None]
